FAERS Safety Report 18870634 (Version 1)
Quarter: 2021Q1

REPORT INFORMATION
  Report Type: Other
  Country: GB (occurrence: GB)
  Receive Date: 20210209
  Receipt Date: 20210209
  Transmission Date: 20210420
  Serious: Yes (Hospitalization)
  Sender: FDA-Public Use
  Company Number: GB-CELLTRION INC.-2021GB001363

PATIENT

DRUGS (4)
  1. DESOGESTREL [Concomitant]
     Active Substance: DESOGESTREL
  2. HYDROXOCOBALAMIN [Concomitant]
     Active Substance: HYDROXOCOBALAMIN
  3. INFLIXIMAB (UNKNOWN) [Suspect]
     Active Substance: INFLIXIMAB
     Indication: CHEMOTHERAPY
     Dosage: 380 MG
     Route: 042
     Dates: start: 20200806, end: 20200806
  4. SERTRALINE [Concomitant]
     Active Substance: SERTRALINE HYDROCHLORIDE

REACTIONS (1)
  - Cold sweat [Recovered/Resolved]

NARRATIVE: CASE EVENT DATE: 20200806
